FAERS Safety Report 4757489-8 (Version None)
Quarter: 2005Q3

REPORT INFORMATION
  Report Type: 
  Country: None (occurrence: None)
  Receive Date: 20050831
  Receipt Date: 20050823
  Transmission Date: 20060218
  Serious: Yes (Hospitalization)
  Sender: FDA-Public Use
  Company Number: US-MERCK-0508USA03764

PATIENT
  Age: 44 Year
  Sex: Female

DRUGS (1)
  1. ZOCOR [Suspect]
     Route: 048
     Dates: start: 20050101

REACTIONS (4)
  - GALLBLADDER DISORDER [None]
  - HEPATIC CYST [None]
  - JAUNDICE [None]
  - LIVER FUNCTION TEST ABNORMAL [None]
